FAERS Safety Report 11184813 (Version 1)
Quarter: 2015Q2

REPORT INFORMATION
  Report Type: Spontaneous
  Country: AU (occurrence: AU)
  Receive Date: 20150612
  Receipt Date: 20150612
  Transmission Date: 20150821
  Serious: Yes (Hospitalization)
  Sender: FDA-Public Use
  Company Number: PHHY2015AU069027

PATIENT
  Age: 62 Year
  Sex: Male

DRUGS (2)
  1. WARFARIN [Suspect]
     Active Substance: WARFARIN
     Indication: VENOUS THROMBOSIS
  2. WARFARIN [Suspect]
     Active Substance: WARFARIN
     Indication: ARTERIAL THROMBOSIS
     Dosage: 1.5 MG, QD
     Route: 065

REACTIONS (7)
  - Aortic aneurysm [Unknown]
  - Coagulopathy [Recovering/Resolving]
  - Respiratory gas exchange disorder [Unknown]
  - Skin necrosis [Recovering/Resolving]
  - Abdominal pain [Recovering/Resolving]
  - Hypotension [Recovering/Resolving]
  - Haematoma [Unknown]
